FAERS Safety Report 21925995 (Version 1)
Quarter: 2023Q1

REPORT INFORMATION
  Report Type: Spontaneous
  Country: US (occurrence: US)
  Receive Date: 20230130
  Receipt Date: 20230130
  Transmission Date: 20230418
  Serious: Yes (Hospitalization)
  Sender: FDA-Public Use
  Company Number: US-MYLANLABS-2023M1009979

PATIENT
  Age: 10 Year
  Sex: Male

DRUGS (9)
  1. MERCAPTOPURINE [Suspect]
     Active Substance: MERCAPTOPURINE
     Indication: T-cell type acute leukaemia
     Dosage: UNK UNK, CYCLE ( INITIAL DOSE UNKNWON)
     Route: 065
  2. MERCAPTOPURINE [Suspect]
     Active Substance: MERCAPTOPURINE
     Dosage: UNK UNK, CYCLE, RECEIVED 120% OF THE ORIGINAL DOSE, WHICH HAD BEEN RECENTLY...
     Route: 065
  3. METHOTREXATE [Suspect]
     Active Substance: METHOTREXATE
     Indication: T-cell type acute leukaemia
     Dosage: UNK UNK, CYCLE, INITIAL DOSE UNKNWON
     Route: 048
  4. METHOTREXATE [Suspect]
     Active Substance: METHOTREXATE
     Dosage: UNK UNK, CYCLE, RECEIVED 125% OF THE ORIGINAL DOSE, WHICH HAD BEEN RECENTLY....
     Route: 048
  5. METHOTREXATE [Suspect]
     Active Substance: METHOTREXATE
     Dosage: RE-INITIATED THERAPY
     Route: 048
  6. VINCRISTINE [Suspect]
     Active Substance: VINCRISTINE
     Indication: T-cell type acute leukaemia
     Dosage: 1.5 MILLIGRAM/SQ. METER, CYCLE, RECEIVED ON DAY 1 TO 5
     Route: 065
  7. VINCRISTINE [Suspect]
     Active Substance: VINCRISTINE
     Dosage: RE-INITIATED THERAPY
     Route: 065
  8. DEXAMETHASONE [Concomitant]
     Active Substance: DEXAMETHASONE
     Indication: T-cell type acute leukaemia
     Dosage: 3 MILLIGRAM/SQ. METER, BID, RECEIVED ON DAY 1 TO 5
     Route: 048
  9. DEXAMETHASONE [Concomitant]
     Active Substance: DEXAMETHASONE
     Dosage: LATER, RE-INITIATED
     Route: 048

REACTIONS (2)
  - Venoocclusive liver disease [Recovered/Resolved]
  - Portal hypertension [Recovering/Resolving]
